FAERS Safety Report 5993894-X (Version None)
Quarter: 2008Q4

REPORT INFORMATION
  Report Type: 
  Country: None (occurrence: None)
  Receive Date: 20081212
  Receipt Date: 20081105
  Transmission Date: 20090506
  Serious: No
  Sender: FDA-Public Use
  Company Number: US-ABBOTT-08P-163-0463846-00

PATIENT
  Sex: Female
  Weight: 71.732 kg

DRUGS (2)
  1. HUMIRA [Suspect]
     Indication: RHEUMATOID ARTHRITIS
     Route: 058
     Dates: start: 20060801
  2. METAXALONE [Concomitant]
     Indication: MUSCLE RELAXANT THERAPY
     Route: 048
     Dates: start: 20010101

REACTIONS (4)
  - ASTHENIA [None]
  - BACK PAIN [None]
  - JOINT STIFFNESS [None]
  - PAIN [None]
